FAERS Safety Report 9366285 (Version 1)
Quarter: 2013Q2

REPORT INFORMATION
  Report Type: Spontaneous
  Country: US (occurrence: US)
  Receive Date: 20130625
  Receipt Date: 20130625
  Transmission Date: 20140414
  Serious: No
  Sender: FDA-Public Use
  Company Number: US-GLAXOSMITHKLINE-A0984276A

PATIENT
  Age: 72 Year
  Sex: Male

DRUGS (3)
  1. VERAMYST [Suspect]
     Indication: SINUS DISORDER
     Dosage: 1SPR PER DAY
     Route: 045
  2. MULTIVITAMIN [Concomitant]
  3. BABY ASPIRIN [Concomitant]

REACTIONS (4)
  - Nasal dryness [Unknown]
  - Overdose [Unknown]
  - Dry throat [Unknown]
  - Product quality issue [Unknown]
